FAERS Safety Report 17029515 (Version 1)
Quarter: 2019Q4

REPORT INFORMATION
  Report Type: Spontaneous
  Country: FR (occurrence: FR)
  Receive Date: 20191114
  Receipt Date: 20191114
  Transmission Date: 20200122
  Serious: Yes (Other)
  Sender: FDA-Public Use
  Company Number: FR-TEVA-2019-FR-1136794

PATIENT
  Age: 19 Year
  Sex: Female

DRUGS (1)
  1. TRAMADOL BASE [Suspect]
     Active Substance: TRAMADOL
     Dosage: 2 TO 6 TABLETS / 2H; 7 TIMES IN 2 WEEKS
     Route: 048
     Dates: start: 201910

REACTIONS (1)
  - Drug use disorder [Not Recovered/Not Resolved]

NARRATIVE: CASE EVENT DATE: 201910
